FAERS Safety Report 4842388-3 (Version None)
Quarter: 2005Q4

REPORT INFORMATION
  Report Type: 
  Country: None (occurrence: None)
  Receive Date: 20051125
  Receipt Date: 20051111
  Transmission Date: 20060501
  Serious: Yes (Other)
  Sender: FDA-Public Use
  Company Number: 2005155257

PATIENT
  Age: 78 Year
  Sex: Male

DRUGS (2)
  1. ZITHROMAX [Suspect]
     Indication: SINUSITIS
     Dosage: SEE IMAGE
     Dates: start: 20050101
  2. ZITHROMAX [Suspect]
     Indication: SINUSITIS
     Dosage: SEE IMAGE
     Dates: start: 20050801

REACTIONS (3)
  - CONDITION AGGRAVATED [None]
  - PLATELET COUNT DECREASED [None]
  - SINUSITIS [None]
